FAERS Safety Report 8596638-0 (Version None)
Quarter: 2012Q3

REPORT INFORMATION
  Report Type: 
  Country: None (occurrence: None)
  Receive Date: 20120815
  Receipt Date: 20120806
  Transmission Date: 20120928
  Serious: Yes (Other)
  Sender: FDA-Public Use
  Company Number: CHPA2012US015335

PATIENT
  Age: 32 Year
  Sex: Female

DRUGS (1)
  1. TRANSDERM SCOP [Suspect]
     Indication: IMPAIRED GASTRIC EMPTYING
     Dosage: 1 PATCH, EVERY 72 HOURS
     Route: 062
     Dates: start: 20120501, end: 20120728

REACTIONS (12)
  - CHEMICAL INJURY [None]
  - DISORIENTATION [None]
  - OFF LABEL USE [None]
  - DRY SKIN [None]
  - DIZZINESS [None]
  - OVERDOSE [None]
  - SKIN SENSITISATION [None]
  - EAR DISORDER [None]
  - NAUSEA [None]
  - VOMITING [None]
  - SKIN EXFOLIATION [None]
  - MYDRIASIS [None]
